APPROVED DRUG PRODUCT: FUROSEMIDE
Active Ingredient: FUROSEMIDE
Strength: 20MG
Dosage Form/Route: TABLET;ORAL
Application: N018415 | Product #001 | TE Code: AB
Applicant: ESJAY PHARMA LLC
Approved: Jul 27, 1982 | RLD: No | RS: No | Type: RX